FAERS Safety Report 6609773-0 (Version None)
Quarter: 2010Q1

REPORT INFORMATION
  Report Type: 
  Country: None (occurrence: None)
  Receive Date: 20100216
  Receipt Date: 20090914
  Transmission Date: 20100710
  Serious: Yes (Life-Threatening, Hospitalization, Other)
  Sender: FDA-Public Use
  Company Number: MC200700515

PATIENT
  Age: 58 Year
  Sex: Female
  Weight: 65 kg

DRUGS (5)
  1. ANGIOMAX [Suspect]
     Indication: ANTICOAGULANT THERAPY
     Dosage: 23 ML, HR, INTRAVENOUS; SEE IMAGE
     Route: 042
     Dates: start: 20070129, end: 20070129
  2. ANGIOMAX [Suspect]
     Indication: ANTICOAGULANT THERAPY
     Dosage: 23 ML, HR, INTRAVENOUS; SEE IMAGE
     Route: 042
     Dates: start: 20070129, end: 20070129
  3. PLACEBO (PLACEBO) INJECTION [Suspect]
     Indication: CORONARY ANGIOPLASTY
     Dosage: 5 ML, BOLUS, INTRAVENOUS; SEE IMAGE
     Route: 042
     Dates: start: 20070629, end: 20070629
  4. PLACEBO (PLACEBO) INJECTION [Suspect]
     Indication: CORONARY ANGIOPLASTY
     Dosage: 5 ML, BOLUS, INTRAVENOUS; SEE IMAGE
     Route: 042
     Dates: start: 20070629, end: 20070629
  5. CLOPIDOGREL [Suspect]
     Indication: CORONARY ANGIOPLASTY
     Dosage: 4 CAPSULES, SINGLE, ORAL
     Route: 048
     Dates: start: 20070629, end: 20070629

REACTIONS (3)
  - CHEST PAIN [None]
  - CORONARY ARTERY THROMBOSIS [None]
  - MYOCARDIAL INFARCTION [None]
